FAERS Safety Report 19873671 (Version 1)
Quarter: 2021Q3

REPORT INFORMATION
  Report Type: Spontaneous
  Country: FR (occurrence: FR)
  Receive Date: 20210922
  Receipt Date: 20210922
  Transmission Date: 20211014
  Serious: Yes (Hospitalization)
  Sender: FDA-Public Use
  Company Number: FR-MYLANLABS-2021M1063953

PATIENT
  Age: 68 Year
  Sex: Male

DRUGS (15)
  1. BISOPROLOL [Suspect]
     Active Substance: BISOPROLOL
     Indication: PRODUCT USED FOR UNKNOWN INDICATION
     Dosage: 2.5 MILLIGRAM, QD
     Route: 048
     Dates: start: 20210222, end: 20210222
  2. CISATRACURIUM. [Suspect]
     Active Substance: CISATRACURIUM
     Indication: SEDATIVE THERAPY
     Dosage: 10 MILLIGRAM, QH
     Route: 042
     Dates: start: 20210222, end: 20210223
  3. MIDAZOLAM. [Suspect]
     Active Substance: MIDAZOLAM
     Indication: SEDATIVE THERAPY
     Dosage: 10 MILLIGRAM, QH
     Route: 042
     Dates: start: 20210221, end: 20210226
  4. HUMALOG [Concomitant]
     Active Substance: INSULIN LISPRO
     Dosage: UNK
  5. KARDEGIC [Concomitant]
     Active Substance: ASPIRIN DL-LYSINE
     Dosage: UNK
  6. VISIPAQUE [Suspect]
     Active Substance: IODIXANOL
     Indication: ANGIOCARDIOGRAM
     Dosage: UNK
     Route: 042
     Dates: start: 20210221, end: 20210221
  7. FUROSEMIDE. [Suspect]
     Active Substance: FUROSEMIDE
     Indication: PRODUCT USED FOR UNKNOWN INDICATION
     Dosage: 40 MILLIGRAM, QD
     Route: 042
     Dates: start: 20210222, end: 20210222
  8. PANTOPRAZOLE [Suspect]
     Active Substance: PANTOPRAZOLE
     Indication: PRODUCT USED FOR UNKNOWN INDICATION
     Dosage: 40 MILLIGRAM, QD
     Route: 042
     Dates: start: 20210221, end: 20210221
  9. CLOPIDOGREL [Concomitant]
     Active Substance: CLOPIDOGREL BISULFATE
     Dosage: UNK
  10. SUFENTANIL [Suspect]
     Active Substance: SUFENTANIL
     Indication: SEDATIVE THERAPY
     Dosage: 15 MICROGRAM, QH
     Route: 042
     Dates: start: 20210221, end: 20210226
  11. DOBUTAMINE [Suspect]
     Active Substance: DOBUTAMINE HYDROCHLORIDE
     Indication: CARDIO-RESPIRATORY ARREST
     Dosage: 20.5 MICROGRAM/KILOGRAM, QMINUTE
     Route: 042
     Dates: start: 20210222, end: 20210227
  12. NORADRENALINE                      /00127501/ [Suspect]
     Active Substance: NOREPINEPHRINE
     Indication: CARDIO-RESPIRATORY ARREST
     Dosage: 1 MILLIGRAM, QH
     Route: 042
     Dates: start: 20210222, end: 20210227
  13. TAHOR [Concomitant]
     Active Substance: ATORVASTATIN CALCIUM
     Dosage: UNK
  14. LOXEN                              /00639802/ [Concomitant]
     Active Substance: NICARDIPINE HYDROCHLORIDE
     Dosage: UNK
  15. PERFALGAN [Concomitant]
     Active Substance: ACETAMINOPHEN
     Dosage: UNK

REACTIONS (1)
  - Thrombocytopenia [Recovered/Resolved]

NARRATIVE: CASE EVENT DATE: 20210223
